FAERS Safety Report 5659167-X (Version None)
Quarter: 2008Q1

REPORT INFORMATION
  Report Type: 
  Country: None (occurrence: None)
  Receive Date: 20080311
  Receipt Date: 20070531
  Transmission Date: 20080703
  Serious: No
  Sender: FDA-Public Use
  Company Number: US-BAYER-200711754BCC

PATIENT
  Sex: Male
  Weight: 100 kg

DRUGS (3)
  1. ALEVE [Suspect]
     Indication: ARTHRITIS
     Dosage: TOTAL DAILY DOSE: 220 MG  UNIT DOSE: 220 MG
     Route: 048
     Dates: start: 20061201
  2. ASPIRIN [Suspect]
     Indication: DRUG USE FOR UNKNOWN INDICATION
     Route: 048
  3. ASPIRIN [Suspect]
     Indication: DRUG USE FOR UNKNOWN INDICATION

REACTIONS (1)
  - CONTUSION [None]
